FAERS Safety Report 9486022 (Version 2)
Quarter: 2013Q4

REPORT INFORMATION
  Report Type: Spontaneous
  Country: JP (occurrence: JP)
  Receive Date: 20130829
  Receipt Date: 20131007
  Transmission Date: 20140711
  Serious: Yes (Other)
  Sender: FDA-Public Use
  Company Number: JP-ROCHE-1267664

PATIENT
  Age: 63 Year
  Sex: Male
  Weight: 59 kg

DRUGS (3)
  1. AVASTIN [Suspect]
     Indication: COLON CANCER METASTATIC
     Dosage: D1 AND FOUR COOL ENFORCEMENT
     Route: 041
     Dates: start: 20120803, end: 20120823
  2. TS-1 [Suspect]
     Indication: COLON CANCER METASTATIC
     Dosage: D1-D14 AND FOUR COOL ENFORCEMENT?COMPLETED TREATMENT CYCLE NUMBER: 4
     Route: 048
     Dates: start: 20120712, end: 20120927
  3. ELPLAT [Suspect]
     Indication: COLON CANCER METASTATIC
     Route: 041
     Dates: start: 20120712, end: 20120913

REACTIONS (1)
  - Hepatic function abnormal [Recovered/Resolved]
